FAERS Safety Report 7371103-7 (Version None)
Quarter: 2011Q1

REPORT INFORMATION
  Report Type: 
  Country: None (occurrence: None)
  Receive Date: 20110324
  Receipt Date: 20101213
  Transmission Date: 20110831
  Serious: Yes (Hospitalization)
  Sender: FDA-Public Use
  Company Number: US-BAYER-2011-025213

PATIENT
  Sex: Female

DRUGS (3)
  1. YASMIN [Suspect]
     Indication: ORAL CONTRACEPTION
     Dosage: UNK
     Dates: start: 20021101, end: 20030901
  2. YASMIN [Suspect]
     Indication: PREMENSTRUAL SYNDROME
  3. ALEVE (CAPLET) [Concomitant]

REACTIONS (2)
  - BILIARY COLIC [None]
  - CHOLECYSTITIS CHRONIC [None]
